FAERS Safety Report 6013717-2 (Version None)
Quarter: 2008Q4

REPORT INFORMATION
  Report Type: 
  Country: None (occurrence: None)
  Receive Date: 20081216
  Receipt Date: 20071029
  Transmission Date: 20090506
  Serious: Yes (Other)
  Sender: FDA-Public Use
  Company Number: US-WYE-H00964907

PATIENT
  Age: 18 Year
  Sex: Female
  Weight: 54.48 kg

DRUGS (3)
  1. EFFEXOR XR [Suspect]
     Indication: PANIC DISORDER
     Dosage: 75 MG 1X PER 1 DAY, ORAL ; 37.5 MG 1X PER 1 DAY, ORAL
     Route: 048
     Dates: start: 20071006, end: 20071012
  2. EFFEXOR XR [Suspect]
     Indication: PANIC DISORDER
     Dosage: 75 MG 1X PER 1 DAY, ORAL ; 37.5 MG 1X PER 1 DAY, ORAL
     Route: 048
     Dates: start: 20071013, end: 20071021
  3. LEXAPRO [Concomitant]

REACTIONS (3)
  - ASTHMA [None]
  - CONDITION AGGRAVATED [None]
  - CYANOSIS [None]
